FAERS Safety Report 9000933 (Version 3)
Quarter: 2013Q1

REPORT INFORMATION
  Report Type: Spontaneous
  Country: IT (occurrence: IT)
  Receive Date: 20130107
  Receipt Date: 20130114
  Transmission Date: 20140127
  Serious: Yes (Death, Other)
  Sender: FDA-Public Use
  Company Number: PHHY2013IT001259

PATIENT
  Age: 65 Year
  Sex: Female

DRUGS (3)
  1. AREDIA [Suspect]
     Indication: PLASMA CELL MYELOMA
     Dosage: 90 MG, MONTHLY
     Route: 042
     Dates: start: 19990901, end: 20020101
  2. AREDIA [Suspect]
     Dosage: 90 MG, MONTHLY
     Route: 042
     Dates: start: 20041001, end: 20060101
  3. ZOMETA [Suspect]
     Indication: PLASMA CELL MYELOMA
     Dosage: 4 MG, MONTHLY
     Route: 042
     Dates: start: 20030501, end: 20040901

REACTIONS (2)
  - Death [Fatal]
  - Osteonecrosis of jaw [Unknown]
